FAERS Safety Report 15889703 (Version 1)
Quarter: 2019Q1

REPORT INFORMATION
  Report Type: Spontaneous
  Country: JP (occurrence: JP)
  Receive Date: 20190130
  Receipt Date: 20190130
  Transmission Date: 20190417
  Serious: Yes (Death, Other)
  Sender: FDA-Public Use
  Company Number: JP-009507513-1901JPN002501J

PATIENT

DRUGS (1)
  1. KEYTRUDA [Suspect]
     Active Substance: PEMBROLIZUMAB
     Indication: NON-SMALL CELL LUNG CANCER
     Dosage: UNK
     Route: 041

REACTIONS (10)
  - Myocarditis [Unknown]
  - Hepatic function abnormal [Unknown]
  - Thyroid disorder [Unknown]
  - Atrioventricular block complete [Unknown]
  - Pruritus [Unknown]
  - Infusion related reaction [Unknown]
  - Pneumonitis [Fatal]
  - Haematuria [Unknown]
  - Rash [Unknown]
  - Pneumonitis [Unknown]
